FAERS Safety Report 19665068 (Version 1)
Quarter: 2021Q3

REPORT INFORMATION
  Report Type: Spontaneous
  Country: AU (occurrence: AU)
  Receive Date: 20210805
  Receipt Date: 20210805
  Transmission Date: 20211014
  Serious: Yes (Death)
  Sender: FDA-Public Use
  Company Number: AU-VIFOR (INTERNATIONAL) INC.-VIT-2021-06456

PATIENT
  Age: 34 Year
  Sex: Female

DRUGS (2)
  1. VELTASSA [Suspect]
     Active Substance: PATIROMER
     Indication: BLOOD POTASSIUM INCREASED
  2. POTASSIUM BATH [Concomitant]

REACTIONS (2)
  - Vascular access complication [Fatal]
  - Sepsis [Fatal]

NARRATIVE: CASE EVENT DATE: 202107
